FAERS Safety Report 20866150 (Version 1)
Quarter: 2022Q2

REPORT INFORMATION
  Report Type: Spontaneous
  Country: US (occurrence: US)
  Receive Date: 20220524
  Receipt Date: 20220524
  Transmission Date: 20220720
  Serious: No
  Sender: FDA-Public Use
  Company Number: US-TEVA-2022-US-2036053

PATIENT
  Age: 57 Year
  Sex: Female

DRUGS (2)
  1. DESVENLAFAXINE [Suspect]
     Active Substance: DESVENLAFAXINE
     Dosage: FORM STRENGTH:50MG, DOSAGE AND ROUTE OF ADMIN: UNKNOWN
     Route: 065
  2. DESVENLAFAXINE [Suspect]
     Active Substance: DESVENLAFAXINE
     Dosage: FORM STRENGTH:100MG, DOSAGE AND ROUTE OF ADMIN: UNKNOWN
     Route: 065

REACTIONS (3)
  - Nausea [Unknown]
  - Dry mouth [Unknown]
  - Rash [Unknown]
